FAERS Safety Report 25900706 (Version 2)
Quarter: 2025Q4

REPORT INFORMATION
  Report Type: Spontaneous
  Country: CN (occurrence: CN)
  Receive Date: 20251009
  Receipt Date: 20251013
  Transmission Date: 20260117
  Serious: Yes (Hospitalization)
  Sender: SANOFI AVENTIS
  Company Number: CN-DialogSolutions-SAAVPROD-PI825692-C1

PATIENT
  Age: 22 Year
  Sex: Female
  Weight: 67.3 kg

DRUGS (6)
  1. TEPLIZUMAB [Suspect]
     Active Substance: TEPLIZUMAB
     Indication: Presymptomatic type 1 diabetes mellitus
     Dosage: 65 UG/M2
     Route: 042
     Dates: start: 20250603, end: 20250603
  2. TEPLIZUMAB [Suspect]
     Active Substance: TEPLIZUMAB
     Dosage: 125 UG/M2
     Route: 042
     Dates: start: 20250604, end: 20250604
  3. TEPLIZUMAB [Suspect]
     Active Substance: TEPLIZUMAB
     Dosage: 250 UG/M2
     Route: 042
     Dates: start: 20250605, end: 20250605
  4. TEPLIZUMAB [Suspect]
     Active Substance: TEPLIZUMAB
     Dosage: 500 UG/M2
     Route: 042
     Dates: start: 20250606, end: 20250606
  5. TEPLIZUMAB [Suspect]
     Active Substance: TEPLIZUMAB
     Dosage: 1030 UG/M2, QD
     Route: 042
     Dates: start: 20250607, end: 20250616
  6. VITAMIN D NOS [Concomitant]
     Active Substance: CHOLECALCIFEROL\ERGOCALCIFEROL
     Indication: Vitamin D deficiency
     Dosage: UNK
     Dates: start: 2025

REACTIONS (8)
  - Lymphadenitis [Recovering/Resolving]
  - Rash [Recovering/Resolving]
  - Tonsillitis [Recovering/Resolving]
  - Mass [Recovering/Resolving]
  - Tenderness [Recovering/Resolving]
  - Lymphadenopathy [Recovering/Resolving]
  - Epstein-Barr virus infection [Unknown]
  - Lymphopenia [Recovered/Resolved]

NARRATIVE: CASE EVENT DATE: 20250601
